FAERS Safety Report 9891661 (Version 1)
Quarter: 2014Q1

REPORT INFORMATION
  Report Type: Spontaneous
  Country: IT (occurrence: IT)
  Receive Date: 20140212
  Receipt Date: 20140212
  Transmission Date: 20141002
  Serious: Yes (Death, Other)
  Sender: FDA-Public Use
  Company Number: PHHY2014IT016849

PATIENT
  Sex: Female

DRUGS (5)
  1. CICLOSPORIN [Suspect]
     Indication: PROPHYLAXIS AGAINST GRAFT VERSUS HOST DISEASE
  2. ANTITHYMOCYTE IMMUNOGLOBULIN [Suspect]
     Indication: PROPHYLAXIS AGAINST GRAFT VERSUS HOST DISEASE
  3. METHOTREXATE [Suspect]
     Indication: PROPHYLAXIS AGAINST GRAFT VERSUS HOST DISEASE
  4. THIOTEPA [Concomitant]
  5. MELPHALAN [Concomitant]

REACTIONS (5)
  - Haemorrhage [Fatal]
  - Chronic graft versus host disease [Fatal]
  - Aspergillus infection [Fatal]
  - Acute graft versus host disease [Unknown]
  - Thrombocytopenia [Unknown]
